FAERS Safety Report 8886112 (Version 1)
Quarter: 2012Q4

REPORT INFORMATION
  Report Type: 
  Country: CN (occurrence: CN)
  Receive Date: 20121105
  Receipt Date: 20121105
  Transmission Date: 20130627
  Serious: Yes (Hospitalization)
  Sender: FDA-Public Use
  Company Number: CN-BAYER-2012-113793

PATIENT
  Age: 25 Year
  Sex: Female

DRUGS (1)
  1. BETAFERON [Suspect]
     Indication: RELAPSING-REMITTING MULTIPLE SCLEROSIS
     Dosage: 1 ml, UNK
     Dates: start: 20120911

REACTIONS (4)
  - Hypoaesthesia [Unknown]
  - Dysuria [Unknown]
  - Muscular weakness [Unknown]
  - Mobility decreased [Unknown]
